FAERS Safety Report 24996582 (Version 1)
Quarter: 2025Q1

REPORT INFORMATION
  Report Type: Spontaneous
  Country: FI (occurrence: FI)
  Receive Date: 20250221
  Receipt Date: 20250221
  Transmission Date: 20250408
  Serious: Yes (Other)
  Sender: MYLAN
  Company Number: FI-Orion Corporation ORION PHARMA-RISP2024-0001

PATIENT
  Age: 16 Year
  Sex: Male

DRUGS (11)
  1. OLANZAPINE [Suspect]
     Active Substance: OLANZAPINE
     Indication: Product used for unknown indication
     Route: 065
  2. SERTRALINE [Suspect]
     Active Substance: SERTRALINE HYDROCHLORIDE
     Indication: Product used for unknown indication
     Route: 065
  3. RISPERIDONE [Suspect]
     Active Substance: RISPERIDONE
     Indication: Behaviour disorder
     Dosage: 0.5 MILLIGRAM, Q6H, FOR 10 YEARS FROM WHEN PATIENT WAS 5 YEARS OLD TO WHEN HE WAS 15 YEARS OLD.
     Route: 065
  4. RISPERIDONE [Suspect]
     Active Substance: RISPERIDONE
     Indication: Speech disorder developmental
  5. METHYLPHENIDATE [Concomitant]
     Active Substance: METHYLPHENIDATE
     Route: 065
  6. LISDEXAMFETAMINE DIMESYLATE [Concomitant]
     Active Substance: LISDEXAMFETAMINE DIMESYLATE
     Route: 065
  7. ABILIFY [Concomitant]
     Active Substance: ARIPIPRAZOLE
     Route: 065
  8. STRATTERA [Concomitant]
     Active Substance: ATOMOXETINE HYDROCHLORIDE
     Route: 065
  9. ATARAX [Concomitant]
     Active Substance: HYDROXYZINE HYDROCHLORIDE
     Route: 065
  10. HALOPERIDOL [Concomitant]
     Active Substance: HALOPERIDOL
     Route: 065
  11. MELATONIN [Concomitant]
     Active Substance: MELATONIN
     Route: 065

REACTIONS (11)
  - Brain injury [Unknown]
  - Drug ineffective [Unknown]
  - Product use issue [Unknown]
  - Product complaint [Unknown]
  - Memory impairment [Unknown]
  - Regressive behaviour [Not Recovered/Not Resolved]
  - Anger [Unknown]
  - Muscle twitching [Not Recovered/Not Resolved]
  - Cutaneous symptom [Unknown]
  - Psychotic disorder [Unknown]
  - Skin burning sensation [Unknown]
